FAERS Safety Report 4495098-9 (Version None)
Quarter: 2004Q4

REPORT INFORMATION
  Report Type: 
  Country: None (occurrence: None)
  Receive Date: 20041105
  Receipt Date: 20041105
  Transmission Date: 20050328
  Serious: Yes (Hospitalization)
  Sender: FDA-Public Use
  Company Number: None

PATIENT
  Sex: Male
  Weight: 96.2 kg

DRUGS (1)
  1. TICLID [Suspect]
     Indication: CEREBROVASCULAR ACCIDENT PROPHYLAXIS
     Dosage: 250 MG     BID    ORAL
     Route: 048
     Dates: start: 20041022, end: 20041102

REACTIONS (2)
  - CONDITION AGGRAVATED [None]
  - ERYTHEMA MULTIFORME [None]
